FAERS Safety Report 5318701-X (Version None)
Quarter: 2007Q2

REPORT INFORMATION
  Report Type: 
  Country: None (occurrence: None)
  Receive Date: 20070503
  Receipt Date: 20070503
  Transmission Date: 20071010
  Serious: No
  Sender: FDA-Public Use
  Company Number: None

PATIENT
  Age: 51 Year
  Sex: Female

DRUGS (4)
  1. LESCOL [Suspect]
     Dates: start: 20050709, end: 20050805
  2. SYNTHROID [Concomitant]
  3. ZYRTEC [Concomitant]
  4. EXTRA STRENGTH TYLENOL [Concomitant]

REACTIONS (12)
  - CHOLESTASIS [None]
  - EXCORIATION [None]
  - GALLBLADDER DISORDER [None]
  - HEPATITIS [None]
  - HYPERSENSITIVITY [None]
  - HYPOGLYCAEMIA [None]
  - IMMUNE SYSTEM DISORDER [None]
  - INSOMNIA [None]
  - LIVER INJURY [None]
  - MONOCYTE PERCENTAGE INCREASED [None]
  - MYALGIA [None]
  - WHITE BLOOD CELL COUNT DECREASED [None]
